FAERS Safety Report 19077404 (Version 1)
Quarter: 2021Q1

REPORT INFORMATION
  Report Type: Spontaneous
  Country: RU (occurrence: RU)
  Receive Date: 20210331
  Receipt Date: 20210331
  Transmission Date: 20210420
  Serious: Yes (Disabling)
  Sender: FDA-Public Use
  Company Number: None

PATIENT
  Age: 29 Year
  Sex: Male
  Weight: 71 kg

DRUGS (16)
  1. ROGAINE [Suspect]
     Active Substance: MINOXIDIL
     Indication: ALOPECIA
     Dosage: ?          QUANTITY:1 ML;?
     Route: 061
     Dates: start: 20191101, end: 20191215
  2. VIAGRA [Concomitant]
     Active Substance: SILDENAFIL CITRATE
  3. TRIBULUS [Concomitant]
  4. SELENIUM [Concomitant]
     Active Substance: SELENIUM
  5. CIALIS [Concomitant]
     Active Substance: TADALAFIL
  6. L CARNITINE [Concomitant]
     Active Substance: LEVOCARNITINE
  7. CREATINE [Concomitant]
     Active Substance: CREATINE
  8. LEVITRA [Concomitant]
     Active Substance: VARDENAFIL HYDROCHLORIDE
  9. MAGNESIUM [Concomitant]
     Active Substance: MAGNESIUM
  10. ZINC. [Concomitant]
     Active Substance: ZINC
  11. VITAMINS: B COMPLEX, C,D,E [Concomitant]
  12. T BOOSTING HERBS [Concomitant]
  13. ANTIOXIDANTS [Concomitant]
  14. IRON [Concomitant]
     Active Substance: IRON
  15. SOD [Concomitant]
  16. PENTOXIFYLLINE. [Concomitant]
     Active Substance: PENTOXIFYLLINE

REACTIONS (12)
  - Depression [None]
  - Fatigue [None]
  - Panic attack [None]
  - Premature ejaculation [None]
  - Anxiety [None]
  - Visual impairment [None]
  - Dry skin [None]
  - Sleep disorder [None]
  - Erectile dysfunction [None]
  - Feeling abnormal [None]
  - Loss of libido [None]
  - Semen volume decreased [None]

NARRATIVE: CASE EVENT DATE: 20200215
